FAERS Safety Report 6144606-0 (Version None)
Quarter: 2009Q2

REPORT INFORMATION
  Report Type: 
  Country: None (occurrence: None)
  Receive Date: 20090406
  Receipt Date: 20090325
  Transmission Date: 20091009
  Serious: Yes (Other)
  Sender: FDA-Public Use
  Company Number: US-PFIZER INC-2009188951

PATIENT
  Sex: Male

DRUGS (3)
  1. DOSTINEX [Suspect]
     Indication: PITUITARY TUMOUR BENIGN
     Dosage: UNK
     Route: 048
     Dates: start: 19960101, end: 20070101
  2. PERMAX [Suspect]
     Indication: PITUITARY TUMOUR BENIGN
     Dosage: UNK
     Route: 048
     Dates: start: 19960101, end: 20070101
  3. PERGOLIDE [Suspect]
     Indication: PITUITARY TUMOUR BENIGN
     Dosage: UNK
     Route: 048
     Dates: start: 19960101, end: 20070101

REACTIONS (3)
  - CARDIAC VALVE DISEASE [None]
  - HEART VALVE INCOMPETENCE [None]
  - PULMONARY HYPERTENSION [None]
